FAERS Safety Report 15923361 (Version 1)
Quarter: 2019Q1

REPORT INFORMATION
  Report Type: Spontaneous
  Country: US (occurrence: US)
  Receive Date: 20190206
  Receipt Date: 20190206
  Transmission Date: 20190417
  Serious: Yes (Disabling)
  Sender: FDA-Public Use
  Company Number: None

PATIENT
  Age: 67 Year
  Sex: Female
  Weight: 63 kg

DRUGS (12)
  1. AMLODIPINE [Concomitant]
     Active Substance: AMLODIPINE BESYLATE
  2. SPIRIVA [Concomitant]
     Active Substance: TIOTROPIUM BROMIDE MONOHYDRATE
  3. RESTASIS [Concomitant]
     Active Substance: CYCLOSPORINE
  4. ALBUTEROL. [Concomitant]
     Active Substance: ALBUTEROL
  5. BIOTINE [Concomitant]
     Active Substance: LACTOPEROXIDASE BOVINE\LYSOZYME HYDROCHLORIDE
  6. LEVOFLOXACIN. [Suspect]
     Active Substance: LEVOFLOXACIN
     Indication: BRONCHITIS
     Dosage: ?          QUANTITY:1 TABLET(S);?
     Route: 048
  7. ASA [Concomitant]
     Active Substance: ASPIRIN
  8. FLAX SEED [Concomitant]
     Active Substance: FLAX SEED
  9. CENTRUM SENIOR VITAMIN [Concomitant]
  10. PRAVASTATIN. [Concomitant]
     Active Substance: PRAVASTATIN
  11. ALENDRONATE [Concomitant]
     Active Substance: ALENDRONATE SODIUM
  12. VITAMIN C [Concomitant]
     Active Substance: ASCORBIC ACID

REACTIONS (2)
  - Memory impairment [None]
  - Hypoaesthesia [None]

NARRATIVE: CASE EVENT DATE: 20190102
